FAERS Safety Report 8506956-X (Version None)
Quarter: 2012Q3

REPORT INFORMATION
  Report Type: 
  Country: None (occurrence: None)
  Receive Date: 20120712
  Receipt Date: 20120702
  Transmission Date: 20120928
  Serious: Yes (Other)
  Sender: FDA-Public Use
  Company Number: US-ELI_LILLY_AND_COMPANY-US201207001795

PATIENT
  Sex: Male

DRUGS (1)
  1. EFFIENT [Suspect]

REACTIONS (2)
  - DRUG DOSE OMISSION [None]
  - ACUTE MYOCARDIAL INFARCTION [None]
